FAERS Safety Report 5861925-3 (Version None)
Quarter: 2008Q3

REPORT INFORMATION
  Report Type: 
  Country: None (occurrence: None)
  Receive Date: 20080827
  Receipt Date: 20080714
  Transmission Date: 20090109
  Serious: No
  Sender: FDA-Public Use
  Company Number: US-ABBOTT-08P-163-0462600-00

PATIENT
  Sex: Female

DRUGS (8)
  1. NIASPAN [Suspect]
     Indication: BLOOD CHOLESTEROL INCREASED
     Route: 048
     Dates: start: 20080601, end: 20080707
  2. NIASPAN [Suspect]
     Route: 048
     Dates: start: 20080707
  3. FLUVASTATIN [Concomitant]
     Indication: DRUG USE FOR UNKNOWN INDICATION
  4. COLESEVELAM HYDROCHLORIDE [Concomitant]
     Indication: DRUG USE FOR UNKNOWN INDICATION
  5. MULTI-VITAMIN [Concomitant]
     Indication: DRUG USE FOR UNKNOWN INDICATION
  6. CALCIUM [Concomitant]
     Indication: DRUG USE FOR UNKNOWN INDICATION
  7. FISH OIL [Concomitant]
     Indication: DRUG USE FOR UNKNOWN INDICATION
  8. MEDICATION FOR BREAST CANCER [Concomitant]
     Indication: BREAST CANCER
     Dates: start: 20020101

REACTIONS (4)
  - FLUSHING [None]
  - PAIN [None]
  - PRURITUS [None]
  - SWELLING [None]
